FAERS Safety Report 8016675-4 (Version None)
Quarter: 2012Q1

REPORT INFORMATION
  Report Type: 
  Country: None (occurrence: None)
  Receive Date: 20120102
  Receipt Date: 20111222
  Transmission Date: 20120608
  Serious: Yes (Hospitalization)
  Sender: FDA-Public Use
  Company Number: US-BIOGENIDEC-2011BI020580

PATIENT
  Age: 48 Year
  Sex: Female

DRUGS (1)
  1. TYSABRI [Suspect]
     Indication: MULTIPLE SCLEROSIS
     Route: 042
     Dates: start: 20060818

REACTIONS (19)
  - BACTERIAL INFECTION [None]
  - STRESS [None]
  - UTERINE NEOPLASM [None]
  - COGNITIVE DISORDER [None]
  - BLOOD PRESSURE FLUCTUATION [None]
  - THROMBOSIS [None]
  - APPENDICECTOMY [None]
  - ABDOMINAL PAIN [None]
  - DEPRESSION [None]
  - MEMORY IMPAIRMENT [None]
  - DYSPHEMIA [None]
  - DYSARTHRIA [None]
  - MUSCULOSKELETAL STIFFNESS [None]
  - ASTHENIA [None]
  - BALANCE DISORDER [None]
  - NEUROPATHY PERIPHERAL [None]
  - MULTIPLE SCLEROSIS [None]
  - BENIGN OVARIAN TUMOUR [None]
  - PYREXIA [None]
